FAERS Safety Report 10015422 (Version 1)
Quarter: 2014Q1

REPORT INFORMATION
  Report Type: Report from Study
  Country: US (occurrence: US)
  Receive Date: 20140317
  Receipt Date: 20140317
  Transmission Date: 20141002
  Serious: Yes (Other)
  Sender: FDA-Public Use
  Company Number: US-BAXTER-2014BAX012410

PATIENT
  Age: 72 Year
  Sex: Female
  Weight: 113.5 kg

DRUGS (8)
  1. GAMMAGARD LIQUID [Suspect]
     Indication: SELECTIVE IGG SUBCLASS DEFICIENCY
     Dosage: INFUSED OVER A DURATION OF 5-6 HOURS
     Route: 042
     Dates: start: 201311, end: 201311
  2. GAMMAGARD LIQUID [Suspect]
     Dosage: INFUSED OVER A DURATION OF 5-6 HOURS
     Route: 042
     Dates: start: 20140116, end: 20140116
  3. GAMMAGARD LIQUID [Suspect]
     Dosage: INFUSED OVER A DURATION OF 5-6 HOURS
     Route: 042
     Dates: start: 20140225, end: 20140225
  4. GAMMAGARD LIQUID [Suspect]
     Dosage: INFUSED OVER A DURATION OF 5-6 HOURS
     Route: 042
     Dates: start: 201312, end: 201312
  5. SYNTHROID [Concomitant]
     Indication: PRODUCT USED FOR UNKNOWN INDICATION
     Dosage: 75 DAILY
     Route: 065
  6. CYMBALTA [Concomitant]
     Indication: PRODUCT USED FOR UNKNOWN INDICATION
     Dosage: 60 DAILY
     Route: 065
     Dates: start: 2012
  7. CRESTOR [Concomitant]
     Indication: PRODUCT USED FOR UNKNOWN INDICATION
     Dosage: DAILY
     Route: 065
  8. ASA [Concomitant]
     Indication: PRODUCT USED FOR UNKNOWN INDICATION
     Dosage: DAILY
     Route: 065

REACTIONS (8)
  - Erythema [Not Recovered/Not Resolved]
  - Pain in extremity [Not Recovered/Not Resolved]
  - Muscular weakness [Not Recovered/Not Resolved]
  - Pain [Not Recovered/Not Resolved]
  - Muscular weakness [Not Recovered/Not Resolved]
  - Vision blurred [Recovered/Resolved]
  - Headache [Recovered/Resolved]
  - Musculoskeletal discomfort [Recovered/Resolved]
